FAERS Safety Report 17662842 (Version 2)
Quarter: 2020Q2

REPORT INFORMATION
  Report Type: Report from Study
  Country: US (occurrence: US)
  Receive Date: 20200413
  Receipt Date: 20200505
  Transmission Date: 20200713
  Serious: Yes (Hospitalization, Other)
  Sender: FDA-Public Use
  Company Number: US-GILEAD-2020-0458741

PATIENT
  Age: 51 Year
  Sex: Female

DRUGS (23)
  1. IPRATROPIUM/ALBUTEROL [Concomitant]
     Active Substance: ALBUTEROL\IPRATROPIUM
  2. BUDESONIDE. [Concomitant]
     Active Substance: BUDESONIDE
  3. VITAMIN D 2000 [Concomitant]
     Active Substance: VITAMIN D NOS
  4. AZTREONAM LYSINE [Suspect]
     Active Substance: AZTREONAM LYSINE
     Indication: CYSTIC FIBROSIS
     Dosage: 75 MG, TID
     Route: 055
  5. ALPRAZOLAM. [Concomitant]
     Active Substance: ALPRAZOLAM
  6. AZITHROMYCIN ANHYDROUS. [Concomitant]
     Active Substance: AZITHROMYCIN ANHYDROUS
  7. ACETYLCYSTEINE. [Concomitant]
     Active Substance: ACETYLCYSTEINE
  8. URSODIOL. [Concomitant]
     Active Substance: URSODIOL
  9. CYCLOBENZAPRINE HYDROCHLORIDE. [Concomitant]
     Active Substance: CYCLOBENZAPRINE HYDROCHLORIDE
  10. COMBIVENT [Concomitant]
     Active Substance: ALBUTEROL SULFATE\IPRATROPIUM BROMIDE
  11. PREDNISONE. [Concomitant]
     Active Substance: PREDNISONE
  12. PULMOZYME [Concomitant]
     Active Substance: DORNASE ALFA
  13. MAGNESIUM [Concomitant]
     Active Substance: MAGNESIUM
  14. MULTI-VIT [Concomitant]
     Active Substance: VITAMINS
  15. TOBRAMYCIN. [Concomitant]
     Active Substance: TOBRAMYCIN
  16. MEROPENEM. [Concomitant]
     Active Substance: MEROPENEM
  17. CALCIUM [Concomitant]
     Active Substance: CALCIUM
  18. VITAMIN D3 [Concomitant]
     Active Substance: CHOLECALCIFEROL
  19. HYPERTONIC SALINE SOLUTION [Concomitant]
     Active Substance: SODIUM CHLORIDE
  20. VENTOLIN [Concomitant]
     Active Substance: ALBUTEROL SULFATE
  21. LORAZEPAM. [Concomitant]
     Active Substance: LORAZEPAM
  22. CALCIUM CARBONATE. [Concomitant]
     Active Substance: CALCIUM CARBONATE
  23. VENTOLIN [Concomitant]
     Active Substance: ALBUTEROL SULFATE

REACTIONS (2)
  - Cystic fibrosis [Unknown]
  - Pneumonia [Unknown]

NARRATIVE: CASE EVENT DATE: 20200405
